FAERS Safety Report 21895270 (Version 1)
Quarter: 2023Q1

REPORT INFORMATION
  Report Type: Spontaneous
  Country: JP (occurrence: JP)
  Receive Date: 20230123
  Receipt Date: 20230123
  Transmission Date: 20230417
  Serious: Yes (Hospitalization)
  Sender: FDA-Public Use
  Company Number: JP-NOVOPROD-1012655

PATIENT
  Age: 84 Year
  Sex: Female

DRUGS (1)
  1. INSULIN NOS [Suspect]
     Active Substance: INSULIN NOS
     Indication: Product used for unknown indication
     Dosage: 900 IU
     Route: 058

REACTIONS (3)
  - Suicide attempt [Unknown]
  - Hypoglycaemic unconsciousness [Recovering/Resolving]
  - Intentional overdose [Unknown]
